FAERS Safety Report 8192277-4 (Version None)
Quarter: 2012Q1

REPORT INFORMATION
  Report Type: 
  Country: None (occurrence: None)
  Receive Date: 20120307
  Receipt Date: 20120224
  Transmission Date: 20120608
  Serious: Yes (Other)
  Sender: FDA-Public Use
  Company Number: JP-ROCHE-1045051

PATIENT
  Sex: Male

DRUGS (19)
  1. MYCOPHENOLATE MOFETIL (CELLCEPT) [Suspect]
     Route: 048
     Dates: start: 20040328, end: 20040328
  2. METHYLPREDNISOLONE [Suspect]
     Indication: PROPHYLAXIS AGAINST TRANSPLANT REJECTION
     Route: 042
     Dates: start: 20040325, end: 20040325
  3. NEORAL [Concomitant]
     Indication: PROPHYLAXIS AGAINST TRANSPLANT REJECTION
     Route: 048
     Dates: start: 20040326
  4. CLINDAMYCIN [Concomitant]
     Indication: PROPHYLAXIS
     Route: 042
     Dates: start: 20040326, end: 20040328
  5. GANCICLOVIR [Concomitant]
     Indication: PROPHYLAXIS
     Route: 042
     Dates: start: 20040326, end: 20040409
  6. FUNGUARD [Concomitant]
     Indication: PROPHYLAXIS
     Dosage: 0-75MG
     Route: 041
     Dates: start: 20040326, end: 20040409
  7. COTRIM [Concomitant]
     Indication: PROPHYLAXIS
     Route: 048
     Dates: start: 20040326, end: 20041006
  8. DOXORUBICIN HYDROCHLORIDE [Concomitant]
     Indication: PROPHYLAXIS
     Route: 042
     Dates: start: 20040401, end: 20040401
  9. MYCOPHENOLATE MOFETIL (CELLCEPT) [Suspect]
     Indication: PROPHYLAXIS AGAINST TRANSPLANT REJECTION
     Route: 048
     Dates: start: 20040326, end: 20040327
  10. MYCOPHENOLATE MOFETIL (CELLCEPT) [Suspect]
     Route: 048
     Dates: start: 20040420, end: 20040626
  11. MYCOPHENOLATE MOFETIL (CELLCEPT) [Suspect]
     Route: 048
     Dates: start: 20040627, end: 20040627
  12. BASILIXIMAB [Suspect]
     Indication: PROPHYLAXIS AGAINST TRANSPLANT REJECTION
     Dosage: 0-6MG
     Route: 042
     Dates: start: 20040325, end: 20040325
  13. BASILIXIMAB [Suspect]
     Dosage: 0-6MG
     Route: 042
     Dates: start: 20040329, end: 20040329
  14. FLUMARIN [Concomitant]
     Indication: PROPHYLAXIS
     Dosage: 75-125I?G
     Route: 042
     Dates: start: 20040326, end: 20040328
  15. OMEPRAZOLE [Concomitant]
     Indication: PROPHYLAXIS
     Route: 042
     Dates: start: 20040326, end: 20040414
  16. RABEPRAZOLE SODIUM [Concomitant]
     Indication: PROPHYLAXIS
     Route: 048
     Dates: start: 20040415, end: 20040418
  17. MYCOPHENOLATE MOFETIL (CELLCEPT) [Suspect]
     Route: 048
     Dates: start: 20040329, end: 20040330
  18. MYCOPHENOLATE MOFETIL (CELLCEPT) [Suspect]
     Route: 048
     Dates: start: 20040401, end: 20040419
  19. URSO 250 [Concomitant]
     Indication: PROPHYLAXIS
     Route: 048
     Dates: start: 20040326, end: 20050216

REACTIONS (2)
  - POST PROCEDURAL HAEMORRHAGE [None]
  - INTRA-ABDOMINAL HAEMORRHAGE [None]
